FAERS Safety Report 8538218-9 (Version None)
Quarter: 2012Q3

REPORT INFORMATION
  Report Type: 
  Country: None (occurrence: None)
  Receive Date: 20120726
  Receipt Date: 20120718
  Transmission Date: 20120928
  Serious: Yes (Hospitalization)
  Sender: FDA-Public Use
  Company Number: US-BIOGENIDEC-2011BI000564

PATIENT
  Age: 45 Year
  Sex: Male

DRUGS (3)
  1. AVONEX [Suspect]
     Indication: MULTIPLE SCLEROSIS
     Route: 030
     Dates: start: 20090309, end: 20090930
  2. AVONEX [Suspect]
     Route: 030
     Dates: start: 20100115
  3. WARFARIN SODIUM [Concomitant]

REACTIONS (10)
  - CENTRAL NERVOUS SYSTEM LESION [None]
  - HYPOAESTHESIA [None]
  - DEPRESSION [None]
  - HEART RATE INCREASED [None]
  - MULTIPLE SCLEROSIS RELAPSE [None]
  - MUSCULAR WEAKNESS [None]
  - UNDERDOSE [None]
  - MULTIPLE SCLEROSIS [None]
  - INJECTION SITE EXTRAVASATION [None]
  - WEIGHT DECREASED [None]
